FAERS Safety Report 8840392 (Version 2)
Quarter: 2012Q4

REPORT INFORMATION
  Report Type: 
  Country: AT (occurrence: AT)
  Receive Date: 20121015
  Receipt Date: 20121105
  Transmission Date: 20130627
  Serious: Yes (Life-Threatening, Hospitalization, Other)
  Sender: FDA-Public Use
  Company Number: AT-ELI_LILLY_AND_COMPANY-AT201210001491

PATIENT
  Age: 48 Year
  Sex: Female

DRUGS (6)
  1. OLANZAPINE [Suspect]
     Indication: PSYCHOTIC DISORDER
     Dosage: 20 mg, qd
     Dates: start: 20120211, end: 20120215
  2. PRAXITEN [Concomitant]
  3. ACECOMB [Concomitant]
     Dosage: UNK
     Dates: start: 2011
  4. EUTHYROX [Concomitant]
     Dosage: UNK
     Dates: start: 2010
  5. KALIORAL [Concomitant]
  6. IVADAL [Concomitant]

REACTIONS (6)
  - Hyponatraemia [Recovered/Resolved]
  - Agitation [Recovered/Resolved]
  - Aggression [Recovered/Resolved]
  - Vomiting [Recovered/Resolved]
  - Flat affect [Recovered/Resolved]
  - Sedation [Recovered/Resolved]
